FAERS Safety Report 22234816 (Version 1)
Quarter: 2023Q2

REPORT INFORMATION
  Report Type: Report from Study
  Country: IT (occurrence: IT)
  Receive Date: 20230420
  Receipt Date: 20230420
  Transmission Date: 20230722
  Serious: Yes (Hospitalization)
  Sender: FDA-Public Use
  Company Number: None

PATIENT
  Age: 74 Year
  Sex: Female

DRUGS (8)
  1. LEVOFLOXACIN [Suspect]
     Active Substance: LEVOFLOXACIN
     Indication: Urinary tract infection
     Dosage: 250 MILLIGRAM, DAILY
     Route: 048
     Dates: start: 20220621, end: 20220624
  2. NIMESULIDE [Suspect]
     Active Substance: NIMESULIDE
     Indication: COVID-19
     Dosage: 1 DOSAGE FORM, DAILY
     Route: 048
     Dates: start: 20220621, end: 20220625
  3. ATORVASTATIN [Concomitant]
     Active Substance: ATORVASTATIN
     Indication: Dyslipidaemia
     Dosage: 1 DOSAGE FORM
     Route: 048
  4. ALPRAZOLAM [Concomitant]
     Active Substance: ALPRAZOLAM
     Indication: Anxiety
     Dosage: DOSAGE: 1 UNIT OF MEASUREMENT: IU LESS THAN 1000
     Route: 048
  5. PANTOPRAZOLE SODIUM [Concomitant]
     Active Substance: PANTOPRAZOLE SODIUM
     Indication: Gastrooesophageal reflux disease
     Dosage: 1 DOSAGE FORM
     Route: 048
  6. DILTIAZEM [Concomitant]
     Active Substance: DILTIAZEM
     Indication: Angina pectoris
     Dosage: 1 DOSAGE FORM
     Route: 048
  7. RANOLAZINE [Concomitant]
     Active Substance: RANOLAZINE
     Indication: Angina pectoris
     Dosage: 1 DOSAGE FORM
     Route: 048
  8. LEVOTHYROXINE SODIUM [Concomitant]
     Active Substance: LEVOTHYROXINE SODIUM
     Indication: Central hypothyroidism
     Dosage: 1 DOSAGE FORM
     Route: 048

REACTIONS (1)
  - Pemphigoid [Recovered/Resolved]

NARRATIVE: CASE EVENT DATE: 20220621
